FAERS Safety Report 8617741 (Version 2)
Quarter: 2013Q4

REPORT INFORMATION
  Report Type: Spontaneous
  Country: FR (occurrence: FR)
  Receive Date: 20120615
  Receipt Date: 20131016
  Transmission Date: 20140711
  Serious: Yes (Hospitalization)
  Sender: FDA-Public Use
  Company Number: FR-GLAXOSMITHKLINE-B0806691A

PATIENT
  Age: 67 Year
  Sex: Female

DRUGS (16)
  1. ZOVIRAX [Suspect]
     Indication: HERPES VIRUS INFECTION
     Dosage: 500MG THREE TIMES PER DAY
     Route: 042
     Dates: start: 20120315, end: 20120322
  2. PIPERACILLIN + TAZOBACTAM [Suspect]
     Indication: INFECTION
     Route: 042
     Dates: start: 20120318, end: 20120322
  3. VANCOMYCINE [Suspect]
     Indication: INFECTION
     Route: 042
     Dates: start: 20120318, end: 20120321
  4. TRIFLUCAN [Suspect]
     Indication: INFECTION
     Route: 042
     Dates: start: 20120320, end: 20120321
  5. CEFTRIAXONE [Concomitant]
     Route: 042
  6. ATARAX [Concomitant]
     Route: 048
  7. PAROXETINE [Concomitant]
     Route: 048
  8. DIFFU K [Concomitant]
     Route: 048
  9. LYSANXIA [Concomitant]
     Route: 048
  10. LANSOYL [Concomitant]
     Route: 048
  11. TRANSIPEG [Concomitant]
     Route: 048
  12. POVIDONE [Concomitant]
     Route: 047
  13. BORIC ACID EYE WASHES [Concomitant]
     Route: 047
  14. TOBREX [Concomitant]
     Route: 047
  15. VITAMINE A DULCIS [Concomitant]
     Route: 047
  16. AMOXICILLINE + AC CLAVULANIQUE [Concomitant]
     Indication: INFECTION
     Dates: start: 20120315, end: 20120317

REACTIONS (1)
  - Neutropenia [Recovered/Resolved]
